FAERS Safety Report 16653066 (Version 4)
Quarter: 2020Q1

REPORT INFORMATION
  Report Type: Report from Study
  Country: US (occurrence: US)
  Receive Date: 20190731
  Receipt Date: 20200227
  Transmission Date: 20200409
  Serious: Yes (Hospitalization)
  Sender: FDA-Public Use
  Company Number: US-ACTELION-A-US2019-193685

PATIENT
  Sex: Female
  Weight: 54.42 kg

DRUGS (1)
  1. TRACLEER [Suspect]
     Active Substance: BOSENTAN
     Indication: PULMONARY HYPERTENSION
     Dosage: 125 MG, BID
     Route: 048

REACTIONS (9)
  - Liver disorder [Unknown]
  - Cough [Unknown]
  - Hot flush [Unknown]
  - Malaise [Unknown]
  - Unevaluable event [Unknown]
  - Infection [Unknown]
  - Hepatic lesion [Unknown]
  - Appendix disorder [Unknown]
  - Drug hypersensitivity [Unknown]
